FAERS Safety Report 9175284 (Version 1)
Quarter: 2013Q1

REPORT INFORMATION
  Report Type: Spontaneous
  Country: FR (occurrence: FR)
  Receive Date: 20130320
  Receipt Date: 20130320
  Transmission Date: 20140127
  Serious: Yes (Hospitalization)
  Sender: FDA-Public Use
  Company Number: FR-ROCHE-1203048

PATIENT
  Age: 82 Year
  Sex: Female

DRUGS (3)
  1. LUCENTIS [Suspect]
     Indication: AGE-RELATED MACULAR DEGENERATION
     Route: 050
     Dates: start: 201112
  2. LEVOTHYROX [Concomitant]
  3. LIPANTHYL [Concomitant]

REACTIONS (1)
  - Retinal artery occlusion [Recovered/Resolved with Sequelae]
